FAERS Safety Report 21816547 (Version 2)
Quarter: 2023Q1

REPORT INFORMATION
  Report Type: Report from Study
  Country: US (occurrence: US)
  Receive Date: 20230104
  Receipt Date: 20230310
  Transmission Date: 20230418
  Serious: No
  Sender: FDA-Public Use
  Company Number: US-ABBVIE-4213848

PATIENT
  Age: 60 Year
  Sex: Female

DRUGS (2)
  1. RINVOQ [Suspect]
     Active Substance: UPADACITINIB
     Indication: Rheumatoid arthritis
     Dosage: ER FORM STRENGTH: 15MG
     Route: 048
     Dates: start: 20221009
  2. RINVOQ [Suspect]
     Active Substance: UPADACITINIB
     Indication: Rheumatoid arthritis
     Dosage: FORM STRENGTH: 15 MG
     Route: 048
     Dates: start: 20221009

REACTIONS (9)
  - Erythema [Unknown]
  - Pain in jaw [Unknown]
  - Acne [Unknown]
  - Asthenia [Unknown]
  - Neck pain [Unknown]
  - Arthralgia [Unknown]
  - Swelling [Unknown]
  - Lymphadenopathy [Unknown]
  - Pain [Unknown]

NARRATIVE: CASE EVENT DATE: 20221101
